FAERS Safety Report 24181909 (Version 1)
Quarter: 2024Q3

REPORT INFORMATION
  Report Type: Spontaneous
  Country: ES (occurrence: ES)
  Receive Date: 20240807
  Receipt Date: 20240807
  Transmission Date: 20241016
  Serious: Yes (Other)
  Sender: ROCHE
  Company Number: None

PATIENT
  Age: 51 Year
  Sex: Female

DRUGS (2)
  1. RITUXIMAB [Suspect]
     Active Substance: RITUXIMAB
     Indication: Dermatomyositis
     Route: 042
     Dates: start: 20240325, end: 20240325
  2. RITUXIMAB [Concomitant]
     Active Substance: RITUXIMAB
     Route: 042
     Dates: start: 2013

REACTIONS (4)
  - Tachypnoea [Recovered/Resolved]
  - Oral pruritus [Recovered/Resolved]
  - Infusion related reaction [Recovered/Resolved]
  - Dyspnoea [Recovered/Resolved]

NARRATIVE: CASE EVENT DATE: 20240325
